FAERS Safety Report 4532549-5 (Version None)
Quarter: 2004Q4

REPORT INFORMATION
  Report Type: 
  Country: None (occurrence: None)
  Receive Date: 20041206
  Receipt Date: 20041123
  Transmission Date: 20050328
  Serious: Yes (Hospitalization)
  Sender: FDA-Public Use
  Company Number: 2004UW24408

PATIENT
  Age: 43 Year
  Sex: Male

DRUGS (1)
  1. CRESTOR [Suspect]
     Dates: start: 20040101

REACTIONS (2)
  - LIVER FUNCTION TEST ABNORMAL [None]
  - MYOPATHY [None]
